FAERS Safety Report 21102816 (Version 1)
Quarter: 2022Q3

REPORT INFORMATION
  Report Type: Spontaneous
  Country: CN (occurrence: CN)
  Receive Date: 20220720
  Receipt Date: 20220720
  Transmission Date: 20221027
  Serious: Yes (Disabling, Other)
  Sender: FDA-Public Use
  Company Number: CN-BAYER-2022A096892

PATIENT
  Age: 85 Year
  Sex: Female
  Weight: 55 kg

DRUGS (6)
  1. XARELTO [Suspect]
     Active Substance: RIVAROXABAN
     Indication: Cerebral infarction
     Dosage: 10 MG, QD
     Route: 048
     Dates: start: 20220515, end: 20220623
  2. ATORVASTATIN CALCIUM [Suspect]
     Active Substance: ATORVASTATIN CALCIUM
     Indication: Cerebral infarction
     Dosage: QS
     Route: 045
     Dates: start: 20220515, end: 20220623
  3. HERBALS [Suspect]
     Active Substance: HERBALS
     Indication: Febrile infection
     Dosage: 5 G, TID
     Route: 045
     Dates: start: 20220613, end: 20220623
  4. CEFTRIAXONE SODIUM [Suspect]
     Active Substance: CEFTRIAXONE SODIUM
     Indication: Febrile infection
     Dosage: 2 G, QD
     Route: 041
     Dates: start: 20220614, end: 20220623
  5. IRBESARTAN [Concomitant]
     Active Substance: IRBESARTAN
     Dosage: 0.15 G, QD
     Route: 045
     Dates: start: 20220515, end: 20220701
  6. SODIUM CHLORIDE [Concomitant]
     Active Substance: SODIUM CHLORIDE
     Indication: Febrile infection
     Dosage: 100 ML, QD
     Route: 041
     Dates: start: 20220614, end: 20220623

REACTIONS (9)
  - Hepatic function abnormal [Recovering/Resolving]
  - Hypertonia [Unknown]
  - Somnolence [Recovered/Resolved]
  - Pyrexia [Unknown]
  - Urinary tract infection [Unknown]
  - Vomiting [Unknown]
  - Temperature intolerance [Unknown]
  - Chills [Unknown]
  - Off label use [Unknown]

NARRATIVE: CASE EVENT DATE: 20220515
